FAERS Safety Report 10921171 (Version 1)
Quarter: 2015Q1

REPORT INFORMATION
  Report Type: Spontaneous
  Country: US (occurrence: None)
  Receive Date: 20150313
  Receipt Date: 20150313
  Transmission Date: 20150721
  Serious: Yes (Hospitalization)
  Sender: FDA-Public Use
  Company Number: None

PATIENT
  Age: 59 Year
  Sex: Female

DRUGS (15)
  1. AMPYRA [Suspect]
     Active Substance: DALFAMPRIDINE
     Indication: MULTIPLE SCLEROSIS
     Dosage: 10 MG TABLETS 60/BO
     Route: 048
     Dates: start: 201401
  2. AMPYRA [Concomitant]
     Active Substance: DALFAMPRIDINE
  3. WARFARIN [Concomitant]
     Active Substance: WARFARIN
  4. VITAMIN D3 [Concomitant]
     Active Substance: CHOLECALCIFEROL
  5. COPAXONE [Concomitant]
     Active Substance: GLATIRAMER ACETATE
  6. CELEXA [Concomitant]
     Active Substance: CITALOPRAM HYDROBROMIDE
  7. CALCIUM [Concomitant]
     Active Substance: CALCIUM
  8. FLONASE [Concomitant]
     Active Substance: FLUTICASONE PROPIONATE
  9. ROBAXIN [Concomitant]
     Active Substance: METHOCARBAMOL
  10. CUVITE [Concomitant]
  11. VITAMIN B12 [Concomitant]
     Active Substance: CYANOCOBALAMIN
  12. LEVAQUIN [Concomitant]
     Active Substance: LEVOFLOXACIN
  13. TRAZODONE [Concomitant]
     Active Substance: TRAZODONE HYDROCHLORIDE
  14. BACLOFEN. [Concomitant]
     Active Substance: BACLOFEN
  15. LOSARTAN [Concomitant]
     Active Substance: LOSARTAN

REACTIONS (3)
  - Areflexia [None]
  - Muscular weakness [None]
  - Sinusitis [None]

NARRATIVE: CASE EVENT DATE: 20140313
